FAERS Safety Report 5626369-8 (Version None)
Quarter: 2008Q1

REPORT INFORMATION
  Report Type: 
  Country: None (occurrence: None)
  Receive Date: 20080211
  Receipt Date: 20071119
  Transmission Date: 20080703
  Serious: Yes (Hospitalization)
  Sender: FDA-Public Use
  Company Number: MK-6037808

PATIENT
  Age: 55 Year
  Sex: Female

DRUGS (4)
  1. CITALOPRAM HYDROBROMIDE [Suspect]
     Indication: DEPRESSION
     Dosage: 20 MG; ORAL
     Route: 048
     Dates: start: 20050701, end: 20051201
  2. IMIPRAMINE [Suspect]
     Dosage: 25MG; ORAL
     Route: 048
     Dates: end: 20060707
  3. LEVOTHYROXINE SODIUM [Concomitant]
  4. MIRTAZAPINE [Concomitant]

REACTIONS (6)
  - ANGLE CLOSURE GLAUCOMA [None]
  - ANXIETY [None]
  - CONDITION AGGRAVATED [None]
  - HYPERTHYROIDISM [None]
  - MYDRIASIS [None]
  - PUPILLARY LIGHT REFLEX TESTS ABNORMAL [None]
